FAERS Safety Report 7402636-2 (Version None)
Quarter: 2011Q2

REPORT INFORMATION
  Report Type: 
  Country: None (occurrence: None)
  Receive Date: 20110408
  Receipt Date: 20110331
  Transmission Date: 20111010
  Serious: Yes (Death)
  Sender: FDA-Public Use
  Company Number: JP-SANOFI-AVENTIS-2011SA018629

PATIENT
  Age: 67 Year
  Sex: Male
  Weight: 45 kg

DRUGS (12)
  1. PLETAL [Concomitant]
     Indication: CEREBRAL INFARCTION
     Route: 048
     Dates: end: 20110310
  2. MYSLEE [Suspect]
     Indication: INSOMNIA
     Route: 048
     Dates: end: 20110310
  3. ITOROL [Concomitant]
     Indication: ANGINA PECTORIS
     Route: 048
     Dates: end: 20110310
  4. DAIKENTYUTO [Concomitant]
     Indication: CONSTIPATION
     Route: 065
     Dates: end: 20110310
  5. DOXAZOSIN MESYLATE [Concomitant]
     Indication: HYPERTENSION
     Route: 048
     Dates: end: 20110310
  6. OMEPRAL [Concomitant]
     Indication: GASTRIC ULCER
     Route: 048
     Dates: end: 20110310
  7. OLMETEC [Concomitant]
     Indication: HYPERTENSION
     Route: 048
     Dates: end: 20110310
  8. EBASTINE [Concomitant]
     Route: 048
     Dates: end: 20110310
  9. PHENOBAL [Concomitant]
     Indication: EPILEPSY
     Dosage: POWDER.
     Route: 065
     Dates: end: 20110310
  10. LAXOBERON [Concomitant]
     Indication: CONSTIPATION
     Route: 048
     Dates: end: 20110310
  11. ADALAT CC [Concomitant]
     Indication: HYPERTENSION
     Route: 048
     Dates: end: 20110310
  12. CALCIUM CARBONATE [Concomitant]
     Route: 048
     Dates: end: 20110310

REACTIONS (1)
  - CARDIO-RESPIRATORY ARREST [None]
